FAERS Safety Report 4712736-3 (Version None)
Quarter: 2005Q3

REPORT INFORMATION
  Report Type: 
  Country: None (occurrence: None)
  Receive Date: 20050701
  Receipt Date: 20050408
  Transmission Date: 20060218
  Serious: Yes (Hospitalization, Other)
  Sender: FDA-Public Use
  Company Number: 2005056929

PATIENT
  Age: 34 Year
  Sex: Male
  Weight: 86.1834 kg

DRUGS (2)
  1. ZOLOFT [Suspect]
     Indication: ANXIETY
     Dosage: 50 MG (50 MG, 1 IN 1D), ORAL
     Route: 048
     Dates: start: 20050402, end: 20050403
  2. ZOLOFT [Suspect]
     Indication: DEPRESSION
     Dosage: 50 MG (50 MG, 1 IN 1D), ORAL
     Route: 048
     Dates: start: 20050402, end: 20050403

REACTIONS (2)
  - CONVULSION [None]
  - SYNCOPE VASOVAGAL [None]
